FAERS Safety Report 6038620-3 (Version None)
Quarter: 2009Q1

REPORT INFORMATION
  Report Type: 
  Country: None (occurrence: None)
  Receive Date: 20090114
  Receipt Date: 20090114
  Transmission Date: 20090719
  Serious: Yes (Hospitalization)
  Sender: FDA-Public Use
  Company Number: None

PATIENT
  Sex: Female
  Weight: 96 kg

DRUGS (6)
  1. CYCLOPHOSPHAMIDE [Suspect]
     Dosage: 1530 MG
  2. DOXORUBICIN HYDROCHLORIDE [Suspect]
     Dosage: 80 MG
  3. ETOPOSIDE [Suspect]
     Dosage: 102 MG
  4. PREDNISONE [Suspect]
     Dosage: 960 MG
  5. RITUXIMAB (MOAB CCB8 ANTI CD20, CHIMERIC) [Suspect]
     Dosage: 765 MG
  6. VINCRISTINE SULFATE [Suspect]
     Dosage: 3.2 MG

REACTIONS (5)
  - ASTHENIA [None]
  - DEEP VEIN THROMBOSIS [None]
  - HAEMOPTYSIS [None]
  - PNEUMONIA [None]
  - PYREXIA [None]
